FAERS Safety Report 19841140 (Version 1)
Quarter: 2021Q3

REPORT INFORMATION
  Report Type: Other
  Country: US (occurrence: US)
  Receive Date: 20210916
  Receipt Date: 20210916
  Transmission Date: 20211014
  Serious: No
  Sender: FDA-Public Use
  Company Number: US-LEADIANT BIOSCIENCES INC-2021STPI000080

PATIENT
  Age: 50 Year
  Sex: Female

DRUGS (9)
  1. MATULANE [Suspect]
     Active Substance: PROCARBAZINE HYDROCHLORIDE
     Indication: BRAIN NEOPLASM MALIGNANT
     Dosage: 50 MILLIGRAM, 3 CAPSULES ON DAYS 8?21 OF A 42?DAY CYCLE
     Route: 048
     Dates: start: 20210111
  2. CALCIUM [Concomitant]
     Active Substance: CALCIUM
     Indication: PRODUCT USED FOR UNKNOWN INDICATION
     Dosage: 500 MILLIGRAM
  3. GLEOSTINE [Concomitant]
     Active Substance: LOMUSTINE
     Indication: PRODUCT USED FOR UNKNOWN INDICATION
     Dosage: 100 MG, TAKE 2 CAPSULES ON DAY 1 ONLY OF EACH 42 DAY CYCLE
     Route: 048
  4. GARLIC (DEODORIZED) [Concomitant]
     Indication: PRODUCT USED FOR UNKNOWN INDICATION
     Dosage: 100 MILLIGRAM
  5. MULTIVITAMINS [VITAMINS NOS] [Concomitant]
     Active Substance: VITAMINS
     Indication: PRODUCT USED FOR UNKNOWN INDICATION
  6. LEVETIRACETAM. [Concomitant]
     Active Substance: LEVETIRACETAM
     Indication: PRODUCT USED FOR UNKNOWN INDICATION
     Dosage: 500 MILLIGRAM
  7. APREPITANT. [Concomitant]
     Active Substance: APREPITANT
     Indication: PRODUCT USED FOR UNKNOWN INDICATION
     Dosage: TAKE 125MG CAPSULES ON DAY 1, THEN 1 80MG CAPSULES DAILY ON DAYS 2 AND 3 AT THE SAME TIME EACH DAY
  8. CINNAMON [CINNAMOMUM BURMANNI;CINNAMOMUM SPP.] [Concomitant]
     Indication: PRODUCT USED FOR UNKNOWN INDICATION
     Dosage: 500 MILLIGRAM
  9. VITAMIN D [COLECALCIFEROL] [Concomitant]
     Active Substance: CHOLECALCIFEROL
     Indication: PRODUCT USED FOR UNKNOWN INDICATION
     Dosage: 1000 INTERNATIONAL UNIT

REACTIONS (3)
  - Urticaria [Recovered/Resolved]
  - Decreased appetite [Not Recovered/Not Resolved]
  - Weight decreased [Not Recovered/Not Resolved]

NARRATIVE: CASE EVENT DATE: 20210111
